FAERS Safety Report 6473651-0 (Version None)
Quarter: 2009Q4

REPORT INFORMATION
  Report Type: 
  Country: None (occurrence: None)
  Receive Date: 20091204
  Receipt Date: 20091124
  Transmission Date: 20100525
  Serious: Yes (Other)
  Sender: FDA-Public Use
  Company Number: RO-BAYER-200940477GPV

PATIENT
  Sex: Female

DRUGS (2)
  1. NIFEDIPINE [Suspect]
     Indication: DRUG USE FOR UNKNOWN INDICATION
  2. ACETAMINOPHEN [Suspect]
     Indication: DRUG USE FOR UNKNOWN INDICATION

REACTIONS (1)
  - PANCREATITIS ACUTE [None]
